FAERS Safety Report 10484441 (Version 1)
Quarter: 2014Q3

REPORT INFORMATION
  Report Type: Spontaneous
  Country: PT (occurrence: PT)
  Receive Date: 20140930
  Receipt Date: 20140930
  Transmission Date: 20150326
  Serious: Yes (Hospitalization)
  Sender: FDA-Public Use
  Company Number: PT-MYLANLABS-2014M1005895

PATIENT

DRUGS (2)
  1. LOSARTAN [Suspect]
     Active Substance: LOSARTAN
     Indication: HYPERTENSION
     Route: 065
  2. CANDESARTAN CILEXETIL AND HYDROCHLOROTHIAZIDE [Suspect]
     Active Substance: CANDESARTAN CILEXETIL\HYDROCHLOROTHIAZIDE
     Indication: HYPERTENSION
     Route: 065

REACTIONS (13)
  - Hypoxia [None]
  - Oropharyngeal spasm [None]
  - Dysphonia [None]
  - Hypotension [None]
  - Vomiting [None]
  - Dyspnoea [None]
  - Laryngeal oedema [None]
  - Anaphylactic shock [Recovered/Resolved]
  - Anaphylactic reaction [Unknown]
  - Pharyngeal oedema [None]
  - Diarrhoea [None]
  - Chills [Unknown]
  - Breath sounds abnormal [None]
